FAERS Safety Report 20849911 (Version 1)
Quarter: 2022Q2

REPORT INFORMATION
  Report Type: Report from Study
  Country: KR (occurrence: US)
  Receive Date: 20220519
  Receipt Date: 20220519
  Transmission Date: 20220721
  Serious: Yes (Death, Other)
  Sender: FDA-Public Use
  Company Number: KR-JNJFOC-20220523821

PATIENT

DRUGS (1)
  1. ULTRACET [Suspect]
     Active Substance: ACETAMINOPHEN\TRAMADOL HYDROCHLORIDE
     Indication: Product used for unknown indication
     Route: 048

REACTIONS (49)
  - Death [Fatal]
  - Paraplegia [Unknown]
  - Paralysis [Unknown]
  - Toxic cardiomyopathy [Unknown]
  - Completed suicide [Unknown]
  - Cardiorenal syndrome [Unknown]
  - Toxic encephalopathy [Unknown]
  - Kounis syndrome [Unknown]
  - Volvulus [Unknown]
  - Rhabdomyolysis [Unknown]
  - Splenic artery aneurysm [Unknown]
  - Empyema [Unknown]
  - Quadriplegia [Unknown]
  - Endocarditis [Unknown]
  - Cardiac infection [Unknown]
  - Cerebellar infarction [Unknown]
  - Hemiplegia [Unknown]
  - Large intestine perforation [Unknown]
  - Diffuse alveolar damage [Unknown]
  - Drug dependence [Unknown]
  - Seizure [Unknown]
  - Drug abuse [Unknown]
  - Withdrawal syndrome [Unknown]
  - Femoral artery aneurysm [Unknown]
  - Fall [Unknown]
  - Iliac artery occlusion [Unknown]
  - Toxicity to various agents [Unknown]
  - Drug hypersensitivity [Unknown]
  - Overdose [Unknown]
  - Insomnia [Unknown]
  - Feeling abnormal [Unknown]
  - Drug ineffective [Unknown]
  - Nausea [Unknown]
  - Dizziness [Unknown]
  - Headache [Unknown]
  - Somnolence [Unknown]
  - Pruritus [Unknown]
  - Drug tolerance [Unknown]
  - Vomiting [Unknown]
  - Abdominal pain [Unknown]
  - Constipation [Unknown]
  - Fatigue [Unknown]
  - Hyperhidrosis [Unknown]
  - Tremor [Unknown]
  - Pain [Unknown]
  - Anxiety [Unknown]
  - Euphoric mood [Unknown]
  - Depression [Unknown]
  - Confusional state [Unknown]
